FAERS Safety Report 8062941-6 (Version None)
Quarter: 2012Q1

REPORT INFORMATION
  Report Type: 
  Country: None (occurrence: None)
  Receive Date: 20120123
  Receipt Date: 20120123
  Transmission Date: 20120608
  Serious: Yes (Other)
  Sender: FDA-Public Use
  Company Number: None

PATIENT
  Age: 38 Year
  Sex: Female
  Weight: 54.431 kg

DRUGS (2)
  1. EXCEDRIN EXTRA STRENGTH TABLETS [Suspect]
     Indication: TENSION HEADACHE
     Dates: start: 20110903, end: 20111112
  2. EXCEDRIN (MIGRAINE) [Concomitant]
     Indication: MIGRAINE
     Dates: start: 20110903, end: 20111112

REACTIONS (3)
  - ABDOMINAL PAIN UPPER [None]
  - ABDOMINAL PAIN LOWER [None]
  - PRODUCT QUALITY ISSUE [None]
